FAERS Safety Report 6612210-3 (Version None)
Quarter: 2010Q1

REPORT INFORMATION
  Report Type: 
  Country: None (occurrence: None)
  Receive Date: 20100303
  Receipt Date: 20100224
  Transmission Date: 20100710
  Serious: Yes (Other)
  Sender: FDA-Public Use
  Company Number: IT-BRISTOL-MYERS SQUIBB COMPANY-14990451

PATIENT
  Age: 24 Year
  Sex: Female

DRUGS (3)
  1. BLEOMYCIN SULFATE [Suspect]
     Indication: HODGKIN'S DISEASE
     Route: 042
     Dates: start: 20091230, end: 20100121
  2. VINCRISTINE [Suspect]
     Indication: HODGKIN'S DISEASE
     Route: 042
     Dates: start: 20091230, end: 20100121
  3. LENOGRASTIM [Concomitant]
     Indication: COLONY STIMULATING FACTOR PROPHYLAXIS
     Route: 058
     Dates: start: 20100122, end: 20100126

REACTIONS (2)
  - AGRANULOCYTOSIS [None]
  - NEUTROPENIA [None]
